FAERS Safety Report 19030071 (Version 1)
Quarter: 2021Q1

REPORT INFORMATION
  Report Type: Spontaneous
  Country: US (occurrence: US)
  Receive Date: 20210319
  Receipt Date: 20210319
  Transmission Date: 20210420
  Serious: No
  Sender: FDA-Public Use
  Company Number: US-TEVA-2021-US-1883270

PATIENT
  Age: 55 Year
  Sex: Female
  Weight: 73.48 kg

DRUGS (13)
  1. ROSUVASTATIN. [Concomitant]
     Active Substance: ROSUVASTATIN
     Indication: BLOOD CHOLESTEROL INCREASED
  2. SINGULAIR [Concomitant]
     Active Substance: MONTELUKAST SODIUM
     Indication: SINUS DISORDER
  3. NURTEC 75 MG [Concomitant]
     Indication: MIGRAINE WITH AURA
  4. MOMETASONE NASAL SPRAY [Concomitant]
     Active Substance: MOMETASONE
     Indication: SINUS DISORDER
  5. OMEPRAZOLE. [Concomitant]
     Active Substance: OMEPRAZOLE
     Indication: GASTROOESOPHAGEAL REFLUX DISEASE
  6. ESTROGEN [Concomitant]
     Active Substance: ESTROGENS
     Indication: MENOPAUSE
  7. FEXOFENADINE [Concomitant]
     Active Substance: FEXOFENADINE HYDROCHLORIDE
     Indication: SINUS DISORDER
  8. ALBUTEROL. [Concomitant]
     Active Substance: ALBUTEROL
     Indication: ASTHMA
  9. INDOMETHACIN 50 MG CAPS [Suspect]
     Active Substance: INDOMETHACIN
     Indication: MIGRAINE WITH AURA
  10. PROGESTERONE. [Concomitant]
     Active Substance: PROGESTERONE
     Indication: MENOPAUSE
  11. AJOVY [Suspect]
     Active Substance: FREMANEZUMAB-VFRM
     Indication: MIGRAINE WITH AURA
     Dosage: MONTHLY INJECTIONS
     Route: 065
     Dates: start: 202012
  12. UBRELVY 50 MG [Concomitant]
     Indication: MIGRAINE WITH AURA
  13. TRELEGY 200 MG [Concomitant]
     Indication: ASTHMA

REACTIONS (9)
  - Adverse event [Unknown]
  - Product use in unapproved indication [Unknown]
  - Anger [Unknown]
  - Incorrect dose administered [Unknown]
  - Injection site pain [Unknown]
  - Product prescribing error [Unknown]
  - Device leakage [Unknown]
  - Accidental exposure to product [Unknown]
  - Dizziness [Unknown]

NARRATIVE: CASE EVENT DATE: 202012
